FAERS Safety Report 5783333-6 (Version None)
Quarter: 2008Q2

REPORT INFORMATION
  Report Type: 
  Country: None (occurrence: None)
  Receive Date: 20080605
  Receipt Date: 20080314
  Transmission Date: 20081010
  Serious: No
  Sender: FDA-Public Use
  Company Number: A0715491A

PATIENT
  Age: 32 Year
  Sex: Female

DRUGS (3)
  1. ALLI [Suspect]
     Dates: start: 20080310
  2. BIRTH CONTROL [Concomitant]
  3. ADVIL [Concomitant]

REACTIONS (2)
  - ANORECTAL DISCOMFORT [None]
  - CONSTIPATION [None]
